FAERS Safety Report 4433763-X (Version None)
Quarter: 2004Q3

REPORT INFORMATION
  Report Type: 
  Country: None (occurrence: None)
  Receive Date: 20040824
  Receipt Date: 20040812
  Transmission Date: 20050211
  Serious: Yes (Other)
  Sender: FDA-Public Use
  Company Number: RB-876-2004

PATIENT
  Age: 26 Year
  Sex: Male

DRUGS (1)
  1. BUPRENORPHINE HYDROCHLORIDE [Suspect]
     Indication: DRUG DEPENDENCE
     Dosage: SL
     Route: 060

REACTIONS (3)
  - DEAFNESS [None]
  - DRUG ABUSER [None]
  - OVERDOSE [None]
